FAERS Safety Report 8126560-5 (Version None)
Quarter: 2012Q1

REPORT INFORMATION
  Report Type: 
  Country: None (occurrence: None)
  Receive Date: 20120210
  Receipt Date: 20120201
  Transmission Date: 20120608
  Serious: Yes (Death, Hospitalization)
  Sender: FDA-Public Use
  Company Number: SE-AMGEN-SWESP2011055382

PATIENT
  Age: 72 Year
  Sex: Female

DRUGS (2)
  1. ETANERCEPT [Suspect]
     Indication: RHEUMATOID ARTHRITIS
     Dosage: 50 MG, QWK
     Dates: start: 20051213, end: 20110413
  2. NAPROSYN [Concomitant]
     Dosage: UNK

REACTIONS (5)
  - SEPSIS [None]
  - DIVERTICULITIS [None]
  - ARTHRITIS BACTERIAL [None]
  - INFECTIOUS PERITONITIS [None]
  - LARGE INTESTINAL ULCER HAEMORRHAGE [None]
